FAERS Safety Report 19423150 (Version 8)
Quarter: 2025Q2

REPORT INFORMATION
  Report Type: Report from Study
  Country: CA (occurrence: CA)
  Receive Date: 20210616
  Receipt Date: 20250418
  Transmission Date: 20250716
  Serious: Yes (Other)
  Sender: TAKEDA
  Company Number: CA-SHIRE-CA202010815

PATIENT
  Age: 69 Year
  Sex: Female
  Weight: 115.6 kg

DRUGS (17)
  1. HUMAN IMMUNOGLOBULIN G [Suspect]
     Active Substance: HUMAN IMMUNOGLOBULIN G
     Indication: Primary immunodeficiency syndrome
     Dosage: 14 GRAM, 1/WEEK
     Dates: start: 20191004
  2. HUMAN IMMUNOGLOBULIN G [Suspect]
     Active Substance: HUMAN IMMUNOGLOBULIN G
     Indication: Immunodeficiency common variable
     Dosage: 14 GRAM, 1/WEEK
  3. HUMAN IMMUNOGLOBULIN G [Suspect]
     Active Substance: HUMAN IMMUNOGLOBULIN G
     Dosage: 14 GRAM, 1/WEEK
  4. OZEMPIC [Suspect]
     Active Substance: SEMAGLUTIDE
     Indication: Product used for unknown indication
  5. GLICLAZIDE [Concomitant]
     Active Substance: GLICLAZIDE
  6. INDERAL [Concomitant]
     Active Substance: PROPRANOLOL HYDROCHLORIDE
  7. FUROSEMIDE [Concomitant]
     Active Substance: FUROSEMIDE
  8. AMLODIPINE [Concomitant]
     Active Substance: AMLODIPINE BESYLATE
  9. ASPIRIN [Concomitant]
     Active Substance: ASPIRIN
  10. ALLOPURINOL [Concomitant]
     Active Substance: ALLOPURINOL
  11. ATORVASTATIN [Concomitant]
     Active Substance: ATORVASTATIN
  12. SINGULAIR [Concomitant]
     Active Substance: MONTELUKAST SODIUM
  13. CLONIDINE [Concomitant]
     Active Substance: CLONIDINE
  14. GABAPENTIN [Concomitant]
     Active Substance: GABAPENTIN
  15. SYNTHROID [Concomitant]
     Active Substance: LEVOTHYROXINE SODIUM
  16. VITAMIN B12 [Concomitant]
     Active Substance: CYANOCOBALAMIN
  17. RABEPRAZOLE SODIUM [Concomitant]
     Active Substance: RABEPRAZOLE SODIUM

REACTIONS (17)
  - Chronic sinusitis [Unknown]
  - Urinary tract disorder [Unknown]
  - Bladder spasm [Unknown]
  - Eczema nummular [Unknown]
  - Procedural complication [Recovered/Resolved]
  - Mean cell volume increased [Unknown]
  - Upper-airway cough syndrome [Recovering/Resolving]
  - Paranasal sinus discomfort [Unknown]
  - Weight decreased [Unknown]
  - Urinary tract infection [Unknown]
  - Micturition urgency [Not Recovered/Not Resolved]
  - Infusion site mass [Recovered/Resolved]
  - Infusion site bruising [Recovered/Resolved]
  - Rash [Recovered/Resolved]
  - Muscle spasms [Unknown]
  - Oedema peripheral [Unknown]
  - Headache [Unknown]

NARRATIVE: CASE EVENT DATE: 20200101
